FAERS Safety Report 5394979-1 (Version None)
Quarter: 2007Q3

REPORT INFORMATION
  Report Type: 
  Country: None (occurrence: None)
  Receive Date: 20070724
  Receipt Date: 20070713
  Transmission Date: 20080115
  Serious: Yes (Hospitalization, Other)
  Sender: FDA-Public Use
  Company Number: PHEH2007US04644

PATIENT
  Age: 31 Year
  Sex: Female
  Weight: 63.038 kg

DRUGS (3)
  1. ZELNORM [Suspect]
     Indication: IRRITABLE BOWEL SYNDROME
     Dosage: 6 MG, QD
     Route: 048
     Dates: start: 20061201, end: 20070331
  2. TOPAMAX [Concomitant]
     Dosage: 200 UNK, UNK
     Route: 048
  3. MIRALAX [Concomitant]

REACTIONS (9)
  - ASTHENIA [None]
  - CARDIAC STRESS TEST ABNORMAL [None]
  - CHEST DISCOMFORT [None]
  - CHEST PAIN [None]
  - DIZZINESS [None]
  - DYSPNOEA [None]
  - ELECTROCARDIOGRAM ST SEGMENT DEPRESSION [None]
  - INFLUENZA LIKE ILLNESS [None]
  - ORTHOPNOEA [None]
